FAERS Safety Report 5477699-4 (Version None)
Quarter: 2007Q4

REPORT INFORMATION
  Report Type: 
  Country: None (occurrence: None)
  Receive Date: 20071003
  Receipt Date: 20071003
  Transmission Date: 20080405
  Serious: No
  Sender: FDA-Public Use
  Company Number: None

PATIENT
  Sex: Male
  Weight: 16.7831 kg

DRUGS (1)
  1. PULMICORT [Suspect]
     Indication: ASTHMA
     Dosage: DAILY DOSE PREMIXED VIAL  ONCE PER DAY  INHAL
     Route: 055
     Dates: start: 20070927, end: 20071002

REACTIONS (7)
  - ABNORMAL BEHAVIOUR [None]
  - ANGER [None]
  - DEPRESSION [None]
  - EMOTIONAL DISORDER [None]
  - ENURESIS [None]
  - REGRESSIVE BEHAVIOUR [None]
  - SOCIAL AVOIDANT BEHAVIOUR [None]
